FAERS Safety Report 7229945-4 (Version None)
Quarter: 2011Q1

REPORT INFORMATION
  Report Type: 
  Country: None (occurrence: None)
  Receive Date: 20110117
  Receipt Date: 20110111
  Transmission Date: 20110831
  Serious: Yes (Hospitalization)
  Sender: FDA-Public Use
  Company Number: GB-ELI_LILLY_AND_COMPANY-GB201101002327

PATIENT
  Age: 63 Year
  Sex: Male
  Weight: 158.75 kg

DRUGS (11)
  1. FOLIC ACID [Concomitant]
  2. METFORMIN HCL [Concomitant]
  3. BYETTA [Suspect]
     Dosage: 5 UG, 2/D
     Route: 058
  4. ROSUVASTATIN [Concomitant]
  5. SOLIFENACIN [Concomitant]
  6. PERINDOPRIL [Concomitant]
  7. GLICLAZIDE [Concomitant]
  8. CITALOPRAM [Concomitant]
  9. PIOGLITAZONE HYDROCHLORIDE [Concomitant]
  10. DICLOFENAC SODIUM [Concomitant]
  11. METHOTREXATE [Concomitant]

REACTIONS (2)
  - PERITONITIS [None]
  - ABDOMINAL PAIN [None]
